FAERS Safety Report 5338521-X (Version None)
Quarter: 2007Q2

REPORT INFORMATION
  Report Type: 
  Country: None (occurrence: None)
  Receive Date: 20070405
  Receipt Date: 20061106
  Transmission Date: 20071010
  Serious: No
  Sender: FDA-Public Use
  Company Number: US200611001124

PATIENT
  Age: 61 Year
  Sex: Female

DRUGS (4)
  1. CYMBALTA [Suspect]
     Indication: ANXIETY
     Dosage: 30 MG ORAL
     Route: 048
     Dates: start: 20061031, end: 20061101
  2. PROPANOLOL (PROPANOLOL) [Concomitant]
  3. IMITREX [Concomitant]
  4. XANAX /USA/ (ALPRAZOLAM) [Concomitant]

REACTIONS (3)
  - PHARYNGEAL ERYTHEMA [None]
  - PHARYNGOLARYNGEAL PAIN [None]
  - THROAT LESION [None]
